FAERS Safety Report 11055028 (Version 1)
Quarter: 2015Q2

REPORT INFORMATION
  Report Type: Spontaneous
  Country: US (occurrence: US)
  Receive Date: 20150422
  Receipt Date: 20150422
  Transmission Date: 20150821
  Serious: No
  Sender: FDA-Public Use
  Company Number: US-SA-2014SA083873

PATIENT
  Age: 80 Year
  Sex: Male
  Weight: 58.05 kg

DRUGS (12)
  1. ZAROXOLYN [Concomitant]
     Active Substance: METOLAZONE
  2. ENOXAPARIN SODIUM - WINTHROP [Suspect]
     Active Substance: ENOXAPARIN SODIUM
     Indication: COAGULOPATHY
     Route: 065
     Dates: start: 20140517
  3. DITROPAN [Concomitant]
     Active Substance: OXYBUTYNIN CHLORIDE
  4. RITALIN [Concomitant]
     Active Substance: METHYLPHENIDATE HYDROCHLORIDE
     Dosage: FERQUENCY: Q A M
  5. PRILOSEC [Concomitant]
     Active Substance: OMEPRAZOLE MAGNESIUM
  6. LASIX [Concomitant]
     Active Substance: FUROSEMIDE
  7. FOLIC ACID. [Concomitant]
     Active Substance: FOLIC ACID
  8. OTHER CHEMOTHERAPEUTICS [Concomitant]
     Active Substance: UNSPECIFIED INGREDIENT
  9. REMERON [Concomitant]
     Active Substance: MIRTAZAPINE
  10. SYNTHROID [Concomitant]
     Active Substance: LEVOTHYROXINE SODIUM
  11. MAG-OX [Concomitant]
     Active Substance: MAGNESIUM OXIDE
  12. DESYREL [Concomitant]
     Active Substance: TRAZODONE HYDROCHLORIDE

REACTIONS (4)
  - Oedema peripheral [Not Recovered/Not Resolved]
  - Injection site nodule [Not Recovered/Not Resolved]
  - Injection site reaction [Not Recovered/Not Resolved]
  - Ecchymosis [Not Recovered/Not Resolved]
